FAERS Safety Report 13906240 (Version 1)
Quarter: 2017Q3

REPORT INFORMATION
  Report Type: Spontaneous
  Country: US (occurrence: None)
  Receive Date: 20170825
  Receipt Date: 20170825
  Transmission Date: 20171127
  Serious: Yes (Life-Threatening, Hospitalization)
  Sender: FDA-Public Use
  Company Number: None

PATIENT
  Age: 60 Year
  Sex: Male

DRUGS (1)
  1. EPINEPH (BRAND) AUTOIJ2PK0.3ML - 0.3MG [Suspect]
     Active Substance: EPINEPHRINE
     Indication: ANAPHYLACTIC REACTION
     Dosage: USE 1 IF STUNG BY A BEE AND GET REACTION  PRN/AS NEEDED INTRAVENOUS BOLUS?SEVERAL YEARS
     Route: 040

REACTIONS (2)
  - Device malfunction [None]
  - Complication associated with device [None]

NARRATIVE: CASE EVENT DATE: 20170813
